FAERS Safety Report 16152716 (Version 1)
Quarter: 2019Q2

REPORT INFORMATION
  Report Type: Spontaneous
  Country: US (occurrence: US)
  Receive Date: 20190403
  Receipt Date: 20190403
  Transmission Date: 20190711
  Serious: No
  Sender: FDA-Public Use
  Company Number: US-TEVA-2019-US-1024702

PATIENT
  Sex: Female
  Weight: 61.29 kg

DRUGS (5)
  1. AMLODIPINE [Concomitant]
     Active Substance: AMLODIPINE BESYLATE
     Dosage: 1 DOSAGE FORMS DAILY;
     Route: 048
  2. ALTACE [Concomitant]
     Active Substance: RAMIPRIL
     Dosage: 1 DOSAGE FORMS DAILY;
     Route: 048
  3. NORTRIPTYLINE HYDROCHLORIDE TEVA [Suspect]
     Active Substance: NORTRIPTYLINE HYDROCHLORIDE
     Indication: PAIN
     Dosage: 75 MILLIGRAM DAILY;
     Route: 048
     Dates: start: 2019
  4. NORTRIPTYLINE HYDROCHLORIDE TEVA [Suspect]
     Active Substance: NORTRIPTYLINE HYDROCHLORIDE
     Indication: APPETITE DISORDER
  5. SEROQUEL [Concomitant]
     Active Substance: QUETIAPINE FUMARATE
     Dosage: 50 MILLIGRAM DAILY;
     Route: 048

REACTIONS (5)
  - Drug ineffective [Unknown]
  - Product use in unapproved indication [Unknown]
  - Abdominal discomfort [Unknown]
  - Product substitution issue [Unknown]
  - Weight decreased [Unknown]
